FAERS Safety Report 24843309 (Version 1)
Quarter: 2025Q1

REPORT INFORMATION
  Report Type: Spontaneous
  Country: FR (occurrence: FR)
  Receive Date: 20250115
  Receipt Date: 20250115
  Transmission Date: 20250408
  Serious: Yes (Disabling)
  Sender: SANOFI AVENTIS
  Company Number: None

PATIENT
  Age: 52 Year
  Sex: Female
  Weight: 87 kg

DRUGS (2)
  1. RIFAMPIN [Suspect]
     Active Substance: RIFAMPIN
     Indication: Staphylococcal infection
     Dosage: 300 MG, TID
     Route: 048
     Dates: start: 20200511, end: 20200612
  2. OFLOXACIN [Suspect]
     Active Substance: OFLOXACIN
     Indication: Staphylococcal infection
     Dosage: 200 MG, TID
     Route: 048
     Dates: start: 20200512, end: 20200612

REACTIONS (1)
  - Tendonitis [Not Recovered/Not Resolved]

NARRATIVE: CASE EVENT DATE: 20200609
